FAERS Safety Report 5289782-7 (Version None)
Quarter: 2007Q2

REPORT INFORMATION
  Report Type: 
  Country: None (occurrence: None)
  Receive Date: 20070406
  Receipt Date: 20070328
  Transmission Date: 20071010
  Serious: Yes (Hospitalization, Other)
  Sender: FDA-Public Use
  Company Number: JP-PFIZER INC-2007025575

PATIENT
  Age: 44 Year
  Sex: Male

DRUGS (3)
  1. JZOLOFT [Suspect]
     Indication: MAJOR DEPRESSION
     Dosage: DAILY DOSE:50MG
     Route: 048
     Dates: start: 20061023, end: 20070308
  2. TERNELIN [Suspect]
     Route: 048
  3. EURODIN [Suspect]
     Dosage: DAILY DOSE:3MG
     Route: 048
     Dates: start: 20070305, end: 20070308

REACTIONS (5)
  - ASTHENIA [None]
  - EMOTIONAL DISTRESS [None]
  - LIVER FUNCTION TEST ABNORMAL [None]
  - LOSS OF CONSCIOUSNESS [None]
  - MUSCLE SPASMS [None]
